FAERS Safety Report 15312290 (Version 1)
Quarter: 2018Q3

REPORT INFORMATION
  Report Type: Spontaneous
  Country: US (occurrence: US)
  Receive Date: 20180814
  Receipt Date: 20180814
  Transmission Date: 20181010
  Serious: Yes (Disabling)
  Sender: FDA-Public Use
  Company Number: None

PATIENT
  Age: 40 Year
  Sex: Female
  Weight: 83.25 kg

DRUGS (3)
  1. DULOXETINE. [Concomitant]
     Active Substance: DULOXETINE
  2. LARIAM [Suspect]
     Active Substance: MEFLOQUINE HYDROCHLORIDE
     Indication: MALARIA PROPHYLAXIS
     Dosage: ?          QUANTITY:1 TABLET(S);OTHER FREQUENCY:ONCE A WEEK;?
     Route: 048
     Dates: start: 20080702, end: 20090520
  3. MELATONIN [Concomitant]
     Active Substance: MELATONIN

REACTIONS (6)
  - Panic attack [None]
  - Hallucination [None]
  - Nightmare [None]
  - Depression [None]
  - Anxiety [None]
  - Insomnia [None]

NARRATIVE: CASE EVENT DATE: 20080711
